FAERS Safety Report 5141153-X (Version None)
Quarter: 2006Q4

REPORT INFORMATION
  Report Type: 
  Country: None (occurrence: None)
  Receive Date: 20061026
  Receipt Date: 20061020
  Transmission Date: 20070319
  Serious: Yes (Other)
  Sender: FDA-Public Use
  Company Number: MX-2006-004140

PATIENT
  Age: 21 Year
  Sex: Male
  Weight: 81 kg

DRUGS (1)
  1. MAGNEVIST [Suspect]
     Indication: NUCLEAR MAGNETIC RESONANCE IMAGING BRAIN
     Dosage: 16 ML, 1 DOSE, IV BOLUS
     Route: 040
     Dates: start: 20060207, end: 20060207

REACTIONS (7)
  - BRADYCARDIA [None]
  - CEREBRAL ARTERIOVENOUS MALFORMATION HAEMORRHAGIC [None]
  - CRANIAL NERVE PARALYSIS [None]
  - HEMIPARESIS [None]
  - NAUSEA [None]
  - RASH [None]
  - RUPTURED CEREBRAL ANEURYSM [None]
